FAERS Safety Report 10581529 (Version 4)
Quarter: 2014Q4

REPORT INFORMATION
  Report Type: Spontaneous
  Country: JP (occurrence: None)
  Receive Date: 20141110
  Receipt Date: 20141231
  Transmission Date: 20150529
  Serious: Yes (Death)
  Sender: FDA-Public Use
  Company Number: 2014MPI01406

PATIENT
  Age: 70 Year
  Sex: Male
  Weight: 62.5 kg

DRUGS (6)
  1. MEROPEN (MEROPENEM TRIHYDRATE) [Concomitant]
  2. NICORANDIL [Concomitant]
     Active Substance: NICORANDIL
  3. FILGRASTIM [Concomitant]
     Active Substance: FILGRASTIM
  4. ADCETRIS [Suspect]
     Active Substance: BRENTUXIMAB VEDOTIN
     Indication: DIFFUSE LARGE B-CELL LYMPHOMA
     Route: 041
     Dates: start: 20141017, end: 20141017
  5. LASIX [Concomitant]
     Active Substance: FUROSEMIDE
  6. RECOMODULIN (THROMBODULIN ALFA) [Concomitant]

REACTIONS (10)
  - Pneumonia [None]
  - Blood pressure decreased [None]
  - Disease progression [None]
  - Oxygen saturation decreased [None]
  - Pulmonary alveolar haemorrhage [None]
  - Lymphoma [None]
  - Death [None]
  - Malignant neoplasm progression [None]
  - Pyrexia [None]
  - Cytopenia [None]

NARRATIVE: CASE EVENT DATE: 20141018
